FAERS Safety Report 13361124 (Version 7)
Quarter: 2017Q4

REPORT INFORMATION
  Report Type: Report from Study
  Country: None (occurrence: GB)
  Receive Date: 20170322
  Receipt Date: 20171027
  Transmission Date: 20180320
  Serious: Yes (Hospitalization, Other)
  Sender: FDA-Public Use
  Company Number: GB-ABBVIE-17P-167-1912765-00

PATIENT
  Age: 76 Year
  Sex: Female
  Weight: 62 kg

DRUGS (9)
  1. AMOXICILLIN. [Concomitant]
     Active Substance: AMOXICILLIN
     Indication: PNEUMONIA
     Route: 048
     Dates: start: 201612
  2. VENCLYXTO [Suspect]
     Active Substance: VENETOCLAX
     Indication: CHRONIC LYMPHOCYTIC LEUKAEMIA
     Dosage: TAKE WITH OR JUST AFTER FOOD, OR A MEAL.
     Route: 048
  3. VENCLYXTO [Suspect]
     Active Substance: VENETOCLAX
     Dosage: TAKE WITH OR JUST AFTER FOOD, OR A MEAL.
     Route: 048
     Dates: start: 20170314, end: 20170315
  4. VENCLYXTO [Suspect]
     Active Substance: VENETOCLAX
     Dosage: TAKE WITH OR JUST AFTER FOOD, OR A MEAL.
     Route: 048
     Dates: end: 20170228
  5. VENCLYXTO [Suspect]
     Active Substance: VENETOCLAX
     Dosage: TAKE WITH OR JUST AFTER FOOD, OR A MEAL.
     Route: 048
  6. AMOXICILLIN. [Concomitant]
     Active Substance: AMOXICILLIN
     Indication: PROPHYLAXIS
  7. PREGABALIN. [Concomitant]
     Active Substance: PREGABALIN
     Indication: NEURALGIA
     Route: 048
     Dates: start: 20170307
  8. ALLOPURINOL. [Concomitant]
     Active Substance: ALLOPURINOL
     Indication: TUMOUR LYSIS SYNDROME
     Route: 048
     Dates: start: 20170311
  9. ALLOPURINOL. [Concomitant]
     Active Substance: ALLOPURINOL
     Indication: PROPHYLAXIS

REACTIONS (5)
  - Neutropenia [Unknown]
  - Tumour lysis syndrome [Recovering/Resolving]
  - Vomiting [Recovering/Resolving]
  - White blood cell count increased [Unknown]
  - Acute kidney injury [Recovering/Resolving]

NARRATIVE: CASE EVENT DATE: 20170314
